FAERS Safety Report 6109168-2 (Version None)
Quarter: 2009Q1

REPORT INFORMATION
  Report Type: 
  Country: None (occurrence: None)
  Receive Date: 20090310
  Receipt Date: 20090304
  Transmission Date: 20090719
  Serious: Yes (Hospitalization, Other)
  Sender: FDA-Public Use
  Company Number: US-ELI_LILLY_AND_COMPANY-US200812002416

PATIENT
  Age: 71 Year
  Sex: Male
  Weight: 85.714 kg

DRUGS (24)
  1. BYETTA [Suspect]
     Dosage: 5 UG, 2/D
     Route: 065
     Dates: start: 20070327, end: 20070409
  2. BYETTA [Suspect]
     Dosage: 10 UG, 2/D
     Dates: start: 20070409, end: 20070620
  3. ZOCOR [Concomitant]
     Dosage: 20 MG, DAILY (1/D)
     Route: 048
  4. ATENOLOL [Concomitant]
     Dosage: 25 MG, DAILY (1/D)
     Route: 048
     Dates: end: 20070401
  5. SINGULAIR [Concomitant]
     Dosage: 10 MG, DAILY (1/D)
  6. ASMANEX TWISTHALER [Concomitant]
     Dosage: UNK, DAILY (1/D)
  7. GLYBURIDE [Concomitant]
     Dosage: 5 MG, 4/D
     Dates: end: 20070409
  8. GLYBURIDE [Concomitant]
     Dosage: 5 MG, OTHER
     Dates: start: 20070409, end: 20070813
  9. GLYBURIDE [Concomitant]
     Dosage: 5 MG, 4/D
     Dates: start: 20070813
  10. GLYBURIDE [Concomitant]
     Dosage: 2.5 MG, 4/D
  11. ACTOS [Concomitant]
     Dosage: 45 MG, DAILY (1/D)
     Route: 048
  12. AVAPRO [Concomitant]
     Indication: LUNG DISORDER
     Dosage: 300 MG, DAILY (1/D)
     Dates: start: 20070327
  13. AVAPRO [Concomitant]
     Dosage: 150 MG, DAILY (1/D)
     Route: 048
  14. PREDNISONE [Concomitant]
     Indication: CHRONIC OBSTRUCTIVE PULMONARY DISEASE
     Dosage: 40 MG, DAILY (1/D)
     Dates: start: 20070322
  15. HYDROCHLOROTHIAZIDE [Concomitant]
     Dosage: 25 MG, DAILY (1/D)
     Route: 048
  16. HYDROCHLOROTHIAZIDE [Concomitant]
     Dosage: 12.5 MG, DAILY (1/D)
  17. AMBIEN [Concomitant]
     Indication: INSOMNIA
     Dosage: 12.5 MG, DAILY (1/D)
     Route: 048
  18. FUROSEMIDE [Concomitant]
     Dosage: 40 MG, UNK
  19. KLOR-CON [Concomitant]
     Dosage: 20 MEQ, UNK
  20. IPRATROPIUM BROMIDE [Concomitant]
     Route: 055
  21. WELLBUTRIN [Concomitant]
     Dosage: 150 MG, 2/D
     Dates: start: 20070104
  22. ASTELIN [Concomitant]
     Dosage: 2 D/F, 2/D
     Dates: start: 20070327
  23. CHANTIX                            /05703001/ [Concomitant]
     Indication: SMOKING CESSATION THERAPY
     Dates: start: 20070322
  24. STARLIX [Concomitant]
     Dosage: 120 MG, 3/D
     Dates: start: 20070411, end: 20070628

REACTIONS (5)
  - BLOOD ALKALINE PHOSPHATASE INCREASED [None]
  - CHOLECYSTITIS CHRONIC [None]
  - DEHYDRATION [None]
  - DRUG HYPERSENSITIVITY [None]
  - PANCREATITIS [None]
